FAERS Safety Report 10450123 (Version 1)
Quarter: 2014Q3

REPORT INFORMATION
  Report Type: Spontaneous
  Country: IT (occurrence: IT)
  Receive Date: 20140912
  Receipt Date: 20140912
  Transmission Date: 20150326
  Serious: Yes (Hospitalization)
  Sender: FDA-Public Use
  Company Number: IT-TEVA-507509ISR

PATIENT
  Age: 54 Year
  Sex: Female
  Weight: 65 kg

DRUGS (2)
  1. DOXORUBICINA TEVA [Suspect]
     Active Substance: DOXORUBICIN
     Indication: BREAST NEOPLASM
     Dosage: 100 MILLIGRAM DAILY; CONCENTRATE FOR SOLUTION FOR INFUSION. DAILY DOSE: 100MG
     Route: 041
     Dates: start: 20140117, end: 20140411
  2. ENDOXAN BAXTER [Concomitant]
     Active Substance: CYCLOPHOSPHAMIDE
     Indication: BREAST NEOPLASM
     Dosage: 1000 MILLIGRAM DAILY;
     Route: 041
     Dates: start: 20140117, end: 20140411

REACTIONS (3)
  - Cardiac disorder [Recovering/Resolving]
  - Ventricular arrhythmia [Recovering/Resolving]
  - Cardiac failure [Recovering/Resolving]

NARRATIVE: CASE EVENT DATE: 20140519
